FAERS Safety Report 5538272-2 (Version None)
Quarter: 2007Q4

REPORT INFORMATION
  Report Type: 
  Country: None (occurrence: None)
  Receive Date: 20071204
  Receipt Date: 20071121
  Transmission Date: 20080405
  Serious: Yes (Life-Threatening)
  Sender: FDA-Public Use
  Company Number: 2007-168035-NL

PATIENT
  Age: 75 Year
  Sex: Male

DRUGS (2)
  1. DEXAMETHASONE SODIUM PHOSPHATE [Suspect]
     Dosage: INTRAVENOUS DRIP
     Route: 041
     Dates: start: 20071121, end: 20071121
  2. RANITIDINE HYDROCHLORIDE [Suspect]
     Dosage: INTRAVENOUS DRIP
     Route: 041
     Dates: start: 20071121, end: 20071121

REACTIONS (1)
  - ANAPHYLACTIC SHOCK [None]
